FAERS Safety Report 25809010 (Version 1)
Quarter: 2025Q3

REPORT INFORMATION
  Report Type: Report from Study
  Country: US (occurrence: US)
  Receive Date: 20250916
  Receipt Date: 20250916
  Transmission Date: 20251021
  Serious: No
  Sender: MALLINCKRODT
  Company Number: US-MALLINCKRODT-MNK202505300

PATIENT
  Age: 9 Month
  Sex: Male
  Weight: 7 kg

DRUGS (5)
  1. CORTICOTROPIN [Suspect]
     Active Substance: CORTICOTROPIN
     Indication: Infantile spasms
     Dates: start: 20250711, end: 2025
  2. CORTICOTROPIN [Suspect]
     Active Substance: CORTICOTROPIN
     Route: 030
     Dates: start: 2025, end: 20250820
  3. FAMOTIDINE [Concomitant]
     Active Substance: FAMOTIDINE
  4. PREDNISONE [Concomitant]
     Active Substance: PREDNISONE
  5. VIGABATRIN [Concomitant]
     Active Substance: VIGABATRIN

REACTIONS (1)
  - Irritability [Recovered/Resolved]

NARRATIVE: CASE EVENT DATE: 20250101
